FAERS Safety Report 11618682 (Version 1)
Quarter: 2015Q4

REPORT INFORMATION
  Report Type: Spontaneous
  Country: VE (occurrence: VE)
  Receive Date: 20151012
  Receipt Date: 20151012
  Transmission Date: 20160304
  Serious: Yes (Hospitalization)
  Sender: FDA-Public Use
  Company Number: VE-ORION CORPORATION ORION PHARMA-ENTC2015-0571

PATIENT
  Sex: Male

DRUGS (3)
  1. NEUPRO [Concomitant]
     Active Substance: ROTIGOTINE
     Route: 065
  2. STALEVO [Suspect]
     Active Substance: CARBIDOPA\ENTACAPONE\LEVODOPA
     Indication: PARKINSON^S DISEASE
     Dosage: PATIENT TAKING 150 MG AND SOME 50 MG TO COMPLETE INDICATED TOTAL DAILY DOSE
     Route: 048
     Dates: end: 20150930
  3. MIRAPEX [Concomitant]
     Active Substance: PRAMIPEXOLE DIHYDROCHLORIDE
     Route: 065
     Dates: start: 2012

REACTIONS (3)
  - Depression [Unknown]
  - Tremor [Unknown]
  - Poisoning [Unknown]

NARRATIVE: CASE EVENT DATE: 2015
